FAERS Safety Report 7474675-7 (Version None)
Quarter: 2011Q2

REPORT INFORMATION
  Report Type: 
  Country: None (occurrence: None)
  Receive Date: 20110505
  Receipt Date: 20110421
  Transmission Date: 20111010
  Serious: Yes (Other)
  Sender: FDA-Public Use
  Company Number: 031453

PATIENT
  Age: 88 Year
  Sex: Female

DRUGS (16)
  1. PREVISCAN /00789001/ [Concomitant]
  2. MEDIATENSYL /00631801/ [Concomitant]
  3. MOTILIUM [Concomitant]
  4. IMEXIUM /01479302/ [Concomitant]
  5. LOVENOX [Concomitant]
  6. IMODIUM /00384302/ [Concomitant]
  7. KEPPRA [Suspect]
     Indication: APHASIA
     Dosage: (500 MG TID ORAL), (500 MG BID ORAL), (250 MG BID ORAL)
     Route: 048
     Dates: start: 20110401
  8. KEPPRA [Suspect]
     Indication: APHASIA
     Dosage: (500 MG TID ORAL), (500 MG BID ORAL), (250 MG BID ORAL)
     Route: 048
     Dates: start: 20110317, end: 20110331
  9. KEPPRA [Suspect]
     Indication: APHASIA
     Dosage: (500 MG TID ORAL), (500 MG BID ORAL), (250 MG BID ORAL)
     Route: 048
     Dates: start: 20110316, end: 20110301
  10. SECTRAL [Concomitant]
  11. FERROUS SULFATE TAB [Concomitant]
  12. ZANIDIP [Concomitant]
  13. DOLIPRANE /00498201/ [Concomitant]
  14. AMYCOR /00806601/ [Concomitant]
  15. FLUCONAZOLE [Concomitant]
  16. KARDEGIC /00002703/ [Concomitant]

REACTIONS (6)
  - DELIRIUM [None]
  - CONFUSIONAL STATE [None]
  - AMNESIA [None]
  - OFF LABEL USE [None]
  - AGITATION [None]
  - DISORIENTATION [None]
